FAERS Safety Report 4597141-5 (Version None)
Quarter: 2005Q1

REPORT INFORMATION
  Report Type: 
  Country: None (occurrence: None)
  Receive Date: 20050224
  Receipt Date: 20041214
  Transmission Date: 20050727
  Serious: Yes (Other)
  Sender: FDA-Public Use
  Company Number: HQWYE932630SEP03

PATIENT
  Age: 43 Year
  Sex: Male

DRUGS (6)
  1. REFACTO [Suspect]
     Indication: FACTOR VIII DEFICIENCY
     Dosage: 3000 IU THREE TIMES WEEKLY PROPHYLAXIS AND ON DEMAND
     Route: 042
     Dates: start: 20030613
  2. REFACTO [Suspect]
  3. TRANEXAMIC ACID (TRANEXAMIC ACID) [Concomitant]
  4. GLUCOSAMINE (GLUCOSAMINE) [Concomitant]
  5. VITAMIN C (ASCORBIC ACID) [Concomitant]
  6. ZINC (ZINC) [Concomitant]

REACTIONS (2)
  - ANTI FACTOR VIII ANTIBODY POSITIVE [None]
  - HAEMARTHROSIS [None]
